FAERS Safety Report 5208323-3 (Version None)
Quarter: 2007Q1

REPORT INFORMATION
  Report Type: 
  Country: None (occurrence: None)
  Receive Date: 20070110
  Receipt Date: 20070110
  Transmission Date: 20070707
  Serious: Yes (Disabling)
  Sender: FDA-Public Use
  Company Number: None

PATIENT
  Age: 81 Year
  Sex: Female
  Weight: 57 kg

DRUGS (16)
  1. LINEZOLID [Suspect]
     Indication: WOUND INFECTION STAPHYLOCOCCAL
     Dosage: 600 Q12H IV
     Route: 042
     Dates: start: 20061209, end: 20070105
  2. ZOSYN [Concomitant]
  3. RAMIPRIL [Concomitant]
  4. AMLODIPINE [Concomitant]
  5. MEGESTROL ACETATE [Concomitant]
  6. FUROSEMIDE [Concomitant]
  7. CLONAZEPAM [Concomitant]
  8. CLOPIDOGREL [Concomitant]
  9. ALPRAZOLAM [Concomitant]
  10. VENLAFAXINE HCL [Concomitant]
  11. VICODIN [Concomitant]
  12. ZINC SULFATE [Concomitant]
  13. PANTOPRAZOLE SODIUM [Concomitant]
  14. POLYETHYLENEGLYCOL -PEG- [Concomitant]
  15. POTASSIUM CHLORIDE [Concomitant]
  16. PREGABALIN [Concomitant]

REACTIONS (2)
  - ANAEMIA [None]
  - PLATELET COUNT DECREASED [None]
